FAERS Safety Report 21155790 (Version 2)
Quarter: 2022Q3

REPORT INFORMATION
  Report Type: Spontaneous
  Country: IT (occurrence: IT)
  Receive Date: 20220801
  Receipt Date: 20220901
  Transmission Date: 20221026
  Serious: Yes (Other)
  Sender: FDA-Public Use
  Company Number: None

PATIENT
  Age: 34 Year
  Sex: Female

DRUGS (3)
  1. HYRIMOZ [Suspect]
     Active Substance: ADALIMUMAB-ADAZ
     Indication: Product used for unknown indication
     Dosage: 40 MG
     Route: 065
     Dates: start: 202202, end: 202207
  2. FOLINA [Concomitant]
     Indication: Product used for unknown indication
     Dosage: 5 MG, QD (1 CPR/DIE)
     Route: 065
  3. ASPIRIN [Concomitant]
     Active Substance: ASPIRIN
     Indication: Product used for unknown indication
     Dosage: 100 MG, QD (UNA VOLTA AL GIORNO)
     Route: 048

REACTIONS (2)
  - Syncope [Unknown]
  - Arthritis [Unknown]

NARRATIVE: CASE EVENT DATE: 20220201
